FAERS Safety Report 16197845 (Version 1)
Quarter: 2019Q2

REPORT INFORMATION
  Report Type: Spontaneous
  Country: US (occurrence: US)
  Receive Date: 20190414
  Receipt Date: 20190414
  Transmission Date: 20190711
  Serious: Yes (Hospitalization, Disabling)
  Sender: FDA-Public Use
  Company Number: None

PATIENT
  Age: 51 Year
  Sex: Female
  Weight: 58.5 kg

DRUGS (17)
  1. VIMPAT [Concomitant]
     Active Substance: LACOSAMIDE
  2. MELATONIN [Concomitant]
     Active Substance: MELATONIN
  3. GARLIC. [Concomitant]
     Active Substance: GARLIC
  4. LINZESS [Concomitant]
     Active Substance: LINACLOTIDE
  5. PREBIOTHRIVE [Concomitant]
  6. SUN SPRECTRUN [Concomitant]
  7. GABAPENTIN ORAL SOLUTION [Suspect]
     Active Substance: GABAPENTIN
     Indication: PERIPHERAL SENSORIMOTOR NEUROPATHY
     Dosage: ?          OTHER ROUTE:TAKEN BY MOUTH OR G-TUBE?
     Dates: start: 20160826, end: 20190414
  8. LORAZEPAM. [Concomitant]
     Active Substance: LORAZEPAM
  9. BENADRYL [Concomitant]
     Active Substance: DIPHENHYDRAMINE HYDROCHLORIDE
  10. TIZANIDINE. [Concomitant]
     Active Substance: TIZANIDINE
  11. ROZEREM [Concomitant]
     Active Substance: RAMELTEON
  12. LACTULOSE. [Concomitant]
     Active Substance: LACTULOSE
  13. IBUPROFEN. [Concomitant]
     Active Substance: IBUPROFEN
  14. VITAMIN D [Concomitant]
     Active Substance: VITAMIN D NOS
  15. LYSINE [Concomitant]
     Active Substance: LYSINE
  16. ONDANSETRON [Concomitant]
     Active Substance: ONDANSETRON
  17. VALACYCLOVIR [Concomitant]
     Active Substance: VALACYCLOVIR HYDROCHLORIDE

REACTIONS (29)
  - Pain [None]
  - Diplopia [None]
  - Amnesia [None]
  - Swelling face [None]
  - Seizure [None]
  - Dyskinesia [None]
  - Syringomyelia [None]
  - Quadriplegia [None]
  - Acute motor-sensory axonal neuropathy [None]
  - Polyneuropathy [None]
  - Libido decreased [None]
  - Breast enlargement [None]
  - Coordination abnormal [None]
  - Subacute inflammatory demyelinating polyneuropathy [None]
  - Coma [None]
  - Documented hypersensitivity to administered product [None]
  - Mania [None]
  - Myalgia [None]
  - Nausea [None]
  - Tracheostomy [None]
  - Psychomotor hyperactivity [None]
  - Muscle contracture [None]
  - Pulmonary function test decreased [None]
  - Herpes virus infection [None]
  - Insomnia [None]
  - Status epilepticus [None]
  - Euphoric mood [None]
  - Infection [None]
  - Fluid retention [None]

NARRATIVE: CASE EVENT DATE: 20170409
